FAERS Safety Report 7628174-X (Version None)
Quarter: 2011Q3

REPORT INFORMATION
  Report Type: 
  Country: None (occurrence: None)
  Receive Date: 20110720
  Receipt Date: 20110720
  Transmission Date: 20111222
  Serious: Yes (Hospitalization)
  Sender: FDA-Public Use
  Company Number: None

PATIENT
  Age: 34 Year
  Sex: Male
  Weight: 86.1834 kg

DRUGS (1)
  1. FINASTERIDE [Suspect]
     Indication: ALOPECIA
     Dosage: 1 MG DAILY PO
     Route: 048
     Dates: start: 20090601, end: 20100305

REACTIONS (22)
  - ANAL HAEMORRHAGE [None]
  - PROSTATITIS [None]
  - HOT FLUSH [None]
  - ABDOMINAL PAIN LOWER [None]
  - ANXIETY [None]
  - ASTHENIA [None]
  - BODY FAT DISORDER [None]
  - PROSTATIC PAIN [None]
  - URINE FLOW DECREASED [None]
  - ARTHRALGIA [None]
  - ERECTILE DYSFUNCTION [None]
  - LOSS OF LIBIDO [None]
  - DEPRESSION [None]
  - FATIGUE [None]
  - DEFORMITY [None]
  - PAIN [None]
  - TESTICULAR PAIN [None]
  - CONSTIPATION [None]
  - DRY SKIN [None]
  - INSOMNIA [None]
  - MUSCLE DISORDER [None]
  - HAIR GROWTH ABNORMAL [None]
